FAERS Safety Report 8455102-X (Version None)
Quarter: 2012Q2

REPORT INFORMATION
  Report Type: 
  Country: None (occurrence: None)
  Receive Date: 20120621
  Receipt Date: 20120613
  Transmission Date: 20120825
  Serious: Yes (Other)
  Sender: FDA-Public Use
  Company Number: DE-UCBSA-059673

PATIENT
  Sex: Female

DRUGS (2)
  1. CIMZIA [Suspect]
     Indication: RHEUMATOID ARTHRITIS
     Dates: start: 20120402, end: 20120416
  2. ARAVA [Concomitant]
     Indication: RHEUMATOID ARTHRITIS
     Dosage: ONCE IN THE MORNING
     Dates: start: 20111005

REACTIONS (3)
  - INJECTION SITE ANAESTHESIA [None]
  - SWELLING FACE [None]
  - SOMNOLENCE [None]
